FAERS Safety Report 4931779-8 (Version None)
Quarter: 2006Q1

REPORT INFORMATION
  Report Type: 
  Country: None (occurrence: None)
  Receive Date: 20060303
  Receipt Date: 20060223
  Transmission Date: 20060701
  Serious: Yes (Hospitalization)
  Sender: FDA-Public Use
  Company Number: CH-AVENTIS-200611154EU

PATIENT
  Age: 28 Year
  Sex: Male
  Weight: 106 kg

DRUGS (9)
  1. LASIX [Suspect]
     Indication: DRUG USE FOR UNKNOWN INDICATION
     Route: 048
  2. BETHANECHOL [Suspect]
     Indication: BLADDER DISORDER
     Route: 048
     Dates: end: 20060120
  3. BETHANECHOL [Suspect]
     Indication: NEUROMYOPATHY
     Route: 048
     Dates: end: 20060120
  4. CONCOR [Suspect]
     Indication: DRUG USE FOR UNKNOWN INDICATION
     Route: 048
  5. COVERSUM [Suspect]
     Indication: DRUG USE FOR UNKNOWN INDICATION
     Route: 048
  6. NORVASC [Suspect]
     Indication: DRUG USE FOR UNKNOWN INDICATION
     Route: 048
  7. CALCIUM ACETATE [Concomitant]
     Route: 048
  8. ASPIRIN [Concomitant]
     Route: 048
  9. EPREX [Concomitant]

REACTIONS (3)
  - HYPOTENSION [None]
  - NAUSEA [None]
  - SYNCOPE [None]
